FAERS Safety Report 8269241 (Version 3)
Quarter: 2013Q1

REPORT INFORMATION
  Report Type: Spontaneous
  Country: AU (occurrence: AU)
  Receive Date: 20111130
  Receipt Date: 20130312
  Transmission Date: 20140127
  Serious: Yes (Hospitalization, Other)
  Sender: FDA-Public Use
  Company Number: PHHY2011AU103430

PATIENT
  Age: 42 Year
  Sex: Female

DRUGS (1)
  1. GILENYA [Suspect]
     Indication: MULTIPLE SCLEROSIS
     Dosage: 0.5 MG, QD
     Route: 048
     Dates: start: 20110622, end: 20111103

REACTIONS (9)
  - Psychotic disorder [Not Recovered/Not Resolved]
  - Abnormal behaviour [Unknown]
  - Hallucination, visual [Unknown]
  - Hallucination, auditory [Unknown]
  - Agitation [Unknown]
  - Multiple sclerosis [Recovering/Resolving]
  - Central nervous system lesion [Unknown]
  - Demyelination [Unknown]
  - Nuclear magnetic resonance imaging abnormal [Unknown]
